FAERS Safety Report 15645988 (Version 1)
Quarter: 2018Q4

REPORT INFORMATION
  Report Type: Report from Study
  Country: None (occurrence: US)
  Receive Date: 20181121
  Receipt Date: 20181121
  Transmission Date: 20190205
  Serious: Yes (Hospitalization)
  Sender: FDA-Public Use
  Company Number: US-ABBVIE-18K-163-2556665-00

PATIENT
  Sex: Female

DRUGS (1)
  1. HUMIRA [Suspect]
     Active Substance: ADALIMUMAB
     Indication: RHEUMATOID ARTHRITIS
     Route: 058
     Dates: start: 20181029

REACTIONS (12)
  - Paraesthesia [Recovered/Resolved]
  - Headache [Recovered/Resolved]
  - Nervous system disorder [Recovered/Resolved]
  - Vitamin B1 decreased [Unknown]
  - Ulcer [Unknown]
  - Blood iron decreased [Unknown]
  - Hypoaesthesia [Recovered/Resolved]
  - Blood thyroid stimulating hormone decreased [Unknown]
  - Muscle twitching [Unknown]
  - Aphasia [Recovered/Resolved]
  - Hemiparesis [Recovered/Resolved]
  - Weight decreased [Unknown]

NARRATIVE: CASE EVENT DATE: 2018
